FAERS Safety Report 7605680-5 (Version None)
Quarter: 2011Q3

REPORT INFORMATION
  Report Type: 
  Country: None (occurrence: None)
  Receive Date: 20110713
  Receipt Date: 20110630
  Transmission Date: 20111222
  Serious: Yes (Death, Other)
  Sender: FDA-Public Use
  Company Number: JP-BAYER-201014210BYL

PATIENT
  Age: 77 Year
  Sex: Male
  Weight: 43 kg

DRUGS (9)
  1. OXINORM [Concomitant]
     Indication: CANCER PAIN
     Dosage: DAILY DOSE 1 G
     Route: 048
     Dates: start: 20100710, end: 20100811
  2. LOXONIN [Concomitant]
     Indication: CANCER PAIN
     Dosage: DAILY DOSE 180 MG
     Route: 048
     Dates: start: 20100710, end: 20100811
  3. AMLODIPINE [Concomitant]
     Indication: HYPERTENSION
     Dosage: DAILY DOSE 5 MG
     Route: 048
     Dates: start: 20100710, end: 20100811
  4. RABEPRAZOLE SODIUM [Concomitant]
     Indication: GASTRIC ULCER
     Dosage: DAILY DOSE 10 MG
     Route: 048
     Dates: start: 20100710, end: 20100811
  5. ADRENAL HORMONE PREPARATIONS [Concomitant]
     Dosage: UNK
     Route: 065
     Dates: start: 20100712
  6. DIOVAN [Concomitant]
     Indication: HYPERTENSION
     Dosage: DAILY DOSE 80 MG
     Route: 048
     Dates: start: 20100710, end: 20100811
  7. OXYCONTIN [Concomitant]
     Indication: CANCER PAIN
     Dosage: DAILY DOSE 30 MG
     Route: 048
     Dates: start: 20100710, end: 20100811
  8. NEXAVAR [Suspect]
     Indication: HEPATIC NEOPLASM MALIGNANT
     Dosage: 200 MG, BID
     Route: 048
     Dates: start: 20100723, end: 20100811
  9. THEO-DUR [Concomitant]
     Indication: ASTHMA
     Dosage: DAILY DOSE 200 MG
     Route: 048
     Dates: start: 20100710, end: 20100811

REACTIONS (4)
  - PNEUMONIA [None]
  - SEPSIS [None]
  - HEPATIC NEOPLASM MALIGNANT [None]
  - URINARY TRACT INFECTION [None]
